FAERS Safety Report 15451483 (Version 1)
Quarter: 2018Q3

REPORT INFORMATION
  Report Type: Spontaneous
  Country: US (occurrence: US)
  Receive Date: 20180927
  Receipt Date: 20180927
  Transmission Date: 20181010
  Serious: Yes (Other)
  Sender: FDA-Public Use
  Company Number: None

PATIENT
  Sex: Female

DRUGS (2)
  1. UNKNOWN CHEMOTHERAPY REGIMEN [Concomitant]
     Dates: start: 20180901
  2. ZARXIO [Suspect]
     Active Substance: FILGRASTIM-SNDZ
     Indication: NEOPLASM MALIGNANT
     Dosage: ?          OTHER FREQUENCY:TAKEN AFTER CHEMO;?

REACTIONS (1)
  - White blood cell count decreased [None]
